FAERS Safety Report 23516491 (Version 1)
Quarter: 2024Q1

REPORT INFORMATION
  Report Type: 
  Country: None (occurrence: None)
  Receive Date: 20240213
  Receipt Date: 20240213
  Transmission Date: 20240410
  Serious: No
  Sender: FDA-Public Use
  Company Number: QA-ROCHE-3505969

PATIENT

DRUGS (10)
  1. RITUXIMAB [Suspect]
     Active Substance: RITUXIMAB
     Dates: start: 20210624, end: 20211013
  2. RITUXIMAB [Suspect]
     Active Substance: RITUXIMAB
     Dates: start: 20220905, end: 20230201
  3. POLATUZUMAB VEDOTIN [Suspect]
     Active Substance: POLATUZUMAB VEDOTIN
     Dates: start: 20220905, end: 20230201
  4. CYCLOPHOSPHAMIDE [Suspect]
     Active Substance: CYCLOPHOSPHAMIDE
     Dates: start: 20210624, end: 20211013
  5. DOXORUBICIN [Suspect]
     Active Substance: DOXORUBICIN
     Dates: start: 20210624, end: 20211013
  6. VINCRISTINE [Suspect]
     Active Substance: VINCRISTINE
     Dates: start: 20210624, end: 20211013
  7. PREDNISONE [Suspect]
     Active Substance: PREDNISONE
     Dates: start: 20210624, end: 20211013
  8. BENDAMUSTINE [Suspect]
     Active Substance: BENDAMUSTINE
     Dates: start: 20220905, end: 20230201
  9. LENALIDOMIDE [Suspect]
     Active Substance: LENALIDOMIDE
     Dates: start: 20230620, end: 20240205
  10. TAFASITAMAB-CXIX [Suspect]
     Active Substance: TAFASITAMAB-CXIX
     Dates: start: 20230620, end: 20240205

REACTIONS (1)
  - Disease progression [None]
